FAERS Safety Report 10337225 (Version 4)
Quarter: 2016Q3

REPORT INFORMATION
  Report Type: Spontaneous
  Country: US (occurrence: US)
  Receive Date: 20140723
  Receipt Date: 20160822
  Transmission Date: 20161109
  Serious: Yes (Hospitalization, Other)
  Sender: FDA-Public Use
  Company Number: US-PFIZER INC-2014205432

PATIENT
  Age: 51 Year
  Sex: Female
  Weight: 52.16 kg

DRUGS (7)
  1. GABAPENTIN. [Suspect]
     Active Substance: GABAPENTIN
     Dosage: 6 TO 8 TIMES PER DAY
  2. XANAX [Suspect]
     Active Substance: ALPRAZOLAM
     Dosage: UNK
  3. LYRICA [Suspect]
     Active Substance: PREGABALIN
     Indication: NEURALGIA
  4. LYRICA [Suspect]
     Active Substance: PREGABALIN
     Indication: FIBROMYALGIA
     Dosage: UNK
  5. ALPRAZOLAM. [Concomitant]
     Active Substance: ALPRAZOLAM
     Indication: ANXIETY
     Dosage: UNK
  6. GABAPENTIN. [Suspect]
     Active Substance: GABAPENTIN
     Indication: NEURALGIA
     Dosage: 600 MG, UNK
  7. IBUPROFEN. [Suspect]
     Active Substance: IBUPROFEN
     Dosage: UNK

REACTIONS (8)
  - Seizure [Unknown]
  - Hip fracture [Unknown]
  - Helicobacter infection [Unknown]
  - Drug ineffective [Unknown]
  - Malaise [Unknown]
  - Hypersensitivity [Unknown]
  - Dyskinesia [Unknown]
  - Withdrawal syndrome [Unknown]
